FAERS Safety Report 6634502-4 (Version None)
Quarter: 2010Q1

REPORT INFORMATION
  Report Type: 
  Country: None (occurrence: None)
  Receive Date: 20100315
  Receipt Date: 20100310
  Transmission Date: 20100710
  Serious: Yes (Hospitalization)
  Sender: FDA-Public Use
  Company Number: BE-ROCHE-690546

PATIENT
  Sex: Female

DRUGS (1)
  1. ACTEMRA [Suspect]
     Indication: RHEUMATOID ARTHRITIS
     Dosage: START DATE:END-AUG-2009
     Route: 042
     Dates: start: 20090801, end: 20100201

REACTIONS (2)
  - HEADACHE [None]
  - ORAL HERPES [None]
